FAERS Safety Report 6319491-4 (Version None)
Quarter: 2009Q3

REPORT INFORMATION
  Report Type: 
  Country: None (occurrence: None)
  Receive Date: 20090822
  Receipt Date: 20080910
  Transmission Date: 20100115
  Serious: No
  Sender: FDA-Public Use
  Company Number: US-ABBOTT-08P-163-0475464-00

PATIENT
  Sex: Male
  Weight: 108.96 kg

DRUGS (10)
  1. NIASPAN [Suspect]
     Indication: BLOOD CHOLESTEROL INCREASED
     Route: 048
     Dates: start: 20080710, end: 20080818
  2. LISINOPRIL [Concomitant]
     Indication: HYPERTENSION
     Route: 048
  3. MONTELUKAST [Concomitant]
     Indication: ASTHMA
  4. SERETIDE [Concomitant]
     Indication: ASTHMA
     Dosage: 100/50
     Route: 055
  5. M.V.I. [Concomitant]
     Indication: ROUTINE HEALTH MAINTENANCE
     Route: 048
  6. FISH OIL [Concomitant]
     Indication: ROUTINE HEALTH MAINTENANCE
     Route: 048
  7. LINUM USITATISSIMUM SEED OIL [Concomitant]
     Indication: ROUTINE HEALTH MAINTENANCE
     Route: 048
  8. FENOFIBRATE [Concomitant]
     Indication: BLOOD CHOLESTEROL INCREASED
     Route: 048
     Dates: start: 20080801
  9. ASPIRIN [Concomitant]
     Indication: PROPHYLAXIS
     Route: 048
  10. ASPIRIN [Concomitant]
     Indication: FLUSHING

REACTIONS (2)
  - DIZZINESS [None]
  - PALPITATIONS [None]
